FAERS Safety Report 8950521 (Version 1)
Quarter: 2012Q4

REPORT INFORMATION
  Report Type: Report from Study
  Country: US (occurrence: US)
  Receive Date: 20121207
  Receipt Date: 20121207
  Transmission Date: 20130627
  Serious: Yes (Other)
  Sender: FDA-Public Use
  Company Number: US-JNJFOC-20121114794

PATIENT
  Age: 53 None
  Sex: Female
  Weight: 81.65 kg

DRUGS (2)
  1. REMICADE [Suspect]
     Indication: CROHN^S DISEASE
     Route: 042
     Dates: start: 201202, end: 201208
  2. LEVOTHYROXINE [Concomitant]
     Indication: HYPOTHYROIDISM
     Route: 048
     Dates: start: 1997

REACTIONS (2)
  - Lupus-like syndrome [Recovering/Resolving]
  - Oedema peripheral [Not Recovered/Not Resolved]
